FAERS Safety Report 6310274-8 (Version None)
Quarter: 2009Q3

REPORT INFORMATION
  Report Type: 
  Country: None (occurrence: None)
  Receive Date: 20090814
  Receipt Date: 20090805
  Transmission Date: 20100115
  Serious: Yes (Hospitalization)
  Sender: FDA-Public Use
  Company Number: PHHY2009CA31964

PATIENT
  Sex: Male

DRUGS (5)
  1. CLOZARIL [Suspect]
     Indication: SCHIZOPHRENIA
     Dosage: UNK
     Route: 042
     Dates: start: 19990211, end: 20090512
  2. CLOZARIL [Suspect]
     Dosage: UNK
     Dates: start: 20090514, end: 20090620
  3. CLOZARIL [Suspect]
     Dosage: 300 MG, UNK
     Route: 048
     Dates: start: 20090708
  4. VANCOMYCIN [Concomitant]
     Dosage: UNK
     Route: 042
     Dates: end: 20090620
  5. RIFAMPICIN [Concomitant]

REACTIONS (3)
  - AGRANULOCYTOSIS [None]
  - NEUTROPENIA [None]
  - SURGERY [None]
